FAERS Safety Report 7392711-3 (Version None)
Quarter: 2011Q2

REPORT INFORMATION
  Report Type: 
  Country: None (occurrence: None)
  Receive Date: 20110404
  Receipt Date: 20110328
  Transmission Date: 20111010
  Serious: Yes (Other)
  Sender: FDA-Public Use
  Company Number: BR-PFIZER INC-2009227796

PATIENT
  Age: 47 Year
  Sex: Female
  Weight: 57.6 kg

DRUGS (4)
  1. CHAMPIX [Suspect]
     Indication: SMOKING CESSATION THERAPY
     Dosage: UNK
     Route: 048
     Dates: start: 20090201
  2. BROMAZEPAM [Concomitant]
     Indication: PANIC ATTACK
     Dosage: UNK
     Dates: start: 20050101
  3. RIVOTRIL [Concomitant]
     Indication: ANXIETY
     Dosage: UNK
     Dates: start: 20040101
  4. CHAMPIX [Suspect]
     Dosage: 1 MG, 2X/DAY
     Dates: start: 20100101

REACTIONS (9)
  - TACHYCARDIA [None]
  - TOOTH INFECTION [None]
  - PAIN IN EXTREMITY [None]
  - ELECTROCARDIOGRAM REPOLARISATION ABNORMALITY [None]
  - DYSSTASIA [None]
  - DYSPNOEA [None]
  - VISION BLURRED [None]
  - RETCHING [None]
  - PALPITATIONS [None]
